FAERS Safety Report 19283383 (Version 1)
Quarter: 2021Q2

REPORT INFORMATION
  Report Type: Spontaneous
  Country: US (occurrence: US)
  Receive Date: 20210521
  Receipt Date: 20210521
  Transmission Date: 20210717
  Serious: Yes (Other)
  Sender: FDA-Public Use
  Company Number: US-AUROBINDO-AUR-APL-2021-021246

PATIENT
  Age: 4 Month
  Sex: Male

DRUGS (6)
  1. MELPHALAN INJECTION [Suspect]
     Active Substance: MELPHALAN
     Dosage: 20 MICROGRAM
  2. TOPOTECAN [Suspect]
     Active Substance: TOPOTECAN HYDROCHLORIDE
     Indication: RETINOBLASTOMA
     Dosage: 0.3 MILLIGRAM
     Route: 065
  3. MELPHALAN INJECTION [Suspect]
     Active Substance: MELPHALAN
     Indication: RETINOBLASTOMA
     Dosage: 3 MILLIGRAM
     Route: 065
  4. VINCRISTINE SULFATE. [Suspect]
     Active Substance: VINCRISTINE SULFATE
     Indication: CONGENITAL RETINOBLASTOMA
     Dosage: UNK
     Route: 065
  5. ETOPOSIDE. [Suspect]
     Active Substance: ETOPOSIDE
     Indication: CONGENITAL RETINOBLASTOMA
     Dosage: UNK
     Route: 065
  6. CARBOPLATIN. [Suspect]
     Active Substance: CARBOPLATIN
     Indication: CONGENITAL RETINOBLASTOMA
     Dosage: 30 MILLIGRAM
     Route: 065

REACTIONS (6)
  - Retinal degeneration [Unknown]
  - Product use in unapproved indication [Unknown]
  - Macular fibrosis [Unknown]
  - Retinopathy proliferative [Unknown]
  - Retinal haemorrhage [Unknown]
  - Product use issue [Unknown]
